FAERS Safety Report 7373987-5 (Version None)
Quarter: 2011Q1

REPORT INFORMATION
  Report Type: 
  Country: None (occurrence: None)
  Receive Date: 20110325
  Receipt Date: 20110322
  Transmission Date: 20110831
  Serious: No
  Sender: FDA-Public Use
  Company Number: US-PFIZER INC-2011064086

PATIENT
  Sex: Female

DRUGS (1)
  1. CORTEF [Suspect]
     Dosage: 5 MG, UNK
     Route: 048

REACTIONS (4)
  - BACK DISORDER [None]
  - NAUSEA [None]
  - GASTROINTESTINAL MOTILITY DISORDER [None]
  - THERAPEUTIC RESPONSE UNEXPECTED [None]
